FAERS Safety Report 6258006-6 (Version None)
Quarter: 2009Q3

REPORT INFORMATION
  Report Type: 
  Country: None (occurrence: None)
  Receive Date: 20090702
  Receipt Date: 20090622
  Transmission Date: 20100115
  Serious: Yes (Life-Threatening, Hospitalization)
  Sender: FDA-Public Use
  Company Number: 2009AP002516

PATIENT
  Age: 42 Year
  Sex: Female

DRUGS (1)
  1. CARBAMAZEPINE [Suspect]
     Indication: TRIGEMINAL NEURALGIA
     Dosage: 150 MG,

REACTIONS (4)
  - CANDIDA PNEUMONIA [None]
  - FALL [None]
  - SEPSIS [None]
  - TOXIC EPIDERMAL NECROLYSIS [None]
